FAERS Safety Report 15017567 (Version 1)
Quarter: 2018Q2

REPORT INFORMATION
  Report Type: Spontaneous
  Country: US (occurrence: US)
  Receive Date: 20180523
  Receipt Date: 20180523
  Transmission Date: 20180711
  Serious: Yes (Disabling)
  Sender: FDA-Public Use
  Company Number: None

PATIENT
  Age: 63 Year
  Sex: Female
  Weight: 78.47 kg

DRUGS (1)
  1. NEUTROGENA HYDROBOOST WATER GEL SUNSCREEN BROAD SPECTRUM SPF 50 [Suspect]
     Active Substance: AVOBENZONE\HOMOSALATE\OCTISALATE\OCTOCRYLENE\OXYBENZONE
     Indication: PHOTOSENSITIVITY REACTION
     Dosage: ?          QUANTITY:PALM FULL;OTHER FREQUENCY:MORNING;?
     Route: 061
     Dates: start: 20180501, end: 20180520

REACTIONS (2)
  - Burning sensation [None]
  - Paraesthesia [None]

NARRATIVE: CASE EVENT DATE: 201805
